FAERS Safety Report 9181358 (Version 3)
Quarter: 2014Q1

REPORT INFORMATION
  Report Type: Spontaneous
  Country: US (occurrence: US)
  Receive Date: 20130322
  Receipt Date: 20140317
  Transmission Date: 20141002
  Serious: Yes (Hospitalization, Other)
  Sender: FDA-Public Use
  Company Number: US-009507513-1303USA009744

PATIENT
  Sex: Female
  Weight: 68.39 kg

DRUGS (12)
  1. FOSAMAX [Suspect]
     Indication: OSTEOPENIA
     Dosage: 70 MG, QW
     Route: 048
     Dates: start: 200907, end: 20110629
  2. ACTONEL [Suspect]
     Indication: OSTEOPENIA
     Dosage: 35 MG, QW
     Dates: start: 200212, end: 200906
  3. ALENDRONATE SODIUM [Suspect]
     Indication: OSTEOPENIA
     Dosage: 70 MG, QW
     Dates: start: 200907, end: 201106
  4. ASCORBIC ACID [Concomitant]
     Dosage: 500 MG, QD
     Dates: start: 2005
  5. CENTRUM SILVER [Concomitant]
     Dosage: UNK, QD
     Dates: start: 2005
  6. VITAMIN D (UNSPECIFIED) [Concomitant]
     Dosage: 1000-50,000, QM
     Dates: start: 2005
  7. OS-CAL + D [Concomitant]
     Dosage: 500-500 MG, TID
     Dates: start: 2005
  8. CHONDROITIN SULFATE SODIUM (+) GLUCOSAMINE SULFATE [Concomitant]
     Dosage: UNK UNK, TID
     Dates: start: 2005
  9. VITAMIN E [Concomitant]
     Dosage: 400 IU, QD
     Dates: start: 2005
  10. ASPIRIN [Concomitant]
     Dosage: 81 MG, QD
     Dates: start: 2005
  11. CALCIUM (UNSPECIFIED) [Concomitant]
     Indication: OSTEOPENIA
     Dosage: 600 MG, BID
  12. PREMARIN [Concomitant]
     Dosage: UNK
     Dates: start: 1990, end: 2010

REACTIONS (23)
  - Intramedullary rod insertion [Recovered/Resolved]
  - Femur fracture [Recovered/Resolved]
  - Low turnover osteopathy [Unknown]
  - Tooth extraction [Unknown]
  - Dental caries [Unknown]
  - Asthma [Unknown]
  - Foot fracture [Unknown]
  - Meniscus injury [Unknown]
  - Arthritis [Unknown]
  - Proctitis herpes [Unknown]
  - Scoliosis [Unknown]
  - Adenotonsillectomy [Unknown]
  - Appendicectomy [Unknown]
  - Hysterectomy [Unknown]
  - Hyperplasia [Unknown]
  - Osteoarthritis [Unknown]
  - Pelvic fracture [Unknown]
  - Bronchitis [Unknown]
  - Osteoarthritis [Unknown]
  - Osteitis [Unknown]
  - Abdominal distension [Unknown]
  - Arthralgia [Unknown]
  - Gastrooesophageal reflux disease [Unknown]
